FAERS Safety Report 22068684 (Version 5)
Quarter: 2024Q2

REPORT INFORMATION
  Report Type: Other
  Country: JP (occurrence: JP)
  Receive Date: 20230307
  Receipt Date: 20240506
  Transmission Date: 20240715
  Serious: Yes (Death, Hospitalization, Other)
  Sender: FDA-Public Use
  Company Number: JP-CHUGAI-2023006946AA

PATIENT
  Age: 61 Year
  Sex: Female
  Weight: 58 kg

DRUGS (6)
  1. AVASTIN [Suspect]
     Active Substance: BEVACIZUMAB
     Indication: Hepatocellular carcinoma
     Dosage: UNK
     Route: 065
     Dates: start: 20211201, end: 20230522
  2. TECENTRIQ [Suspect]
     Active Substance: ATEZOLIZUMAB
     Indication: Hepatocellular carcinoma
     Dosage: UNK
     Route: 065
     Dates: start: 20211201, end: 20230522
  3. VONOPRAZAN FUMARATE [Concomitant]
     Active Substance: VONOPRAZAN FUMARATE
     Indication: Gastritis
     Dosage: 10 MILLIGRAM, QD
     Dates: start: 20211201
  4. NIFEDIPINE [Concomitant]
     Active Substance: NIFEDIPINE
     Indication: Hypertension
     Dosage: 20 MILLIGRAM, BID
     Dates: start: 20211201
  5. URSODIOL [Concomitant]
     Active Substance: URSODIOL
     Indication: Chronic hepatitis
     Dosage: UNK, TID
     Dates: start: 20211201
  6. AZOSEMIDE [Concomitant]
     Active Substance: AZOSEMIDE
     Indication: Polyuria
     Dosage: 60 MILLIGRAM, QD
     Dates: start: 20211201

REACTIONS (4)
  - Hepatic encephalopathy [Not Recovered/Not Resolved]
  - Proteinuria [Recovered/Resolved]
  - Accidental death [Fatal]
  - Hypertension [Unknown]

NARRATIVE: CASE EVENT DATE: 20220119
